FAERS Safety Report 5779050-9 (Version None)
Quarter: 2008Q2

REPORT INFORMATION
  Report Type: 
  Country: None (occurrence: None)
  Receive Date: 20080619
  Receipt Date: 20080612
  Transmission Date: 20081010
  Serious: Yes (Hospitalization)
  Sender: FDA-Public Use
  Company Number: US-TEVA-167654USA

PATIENT
  Sex: Male
  Weight: 69.008 kg

DRUGS (2)
  1. AZILECT [Suspect]
     Route: 048
     Dates: start: 20071219, end: 20080215
  2. SINEMET [Concomitant]
     Dosage: 50/200

REACTIONS (2)
  - HYPERTENSIVE CRISIS [None]
  - MEDICATION ERROR [None]
